FAERS Safety Report 8275144-7 (Version None)
Quarter: 2012Q2

REPORT INFORMATION
  Report Type: 
  Country: None (occurrence: None)
  Receive Date: 20120411
  Receipt Date: 20120331
  Transmission Date: 20120825
  Serious: Yes (Other)
  Sender: FDA-Public Use
  Company Number: PHHY2012DE029785

PATIENT
  Sex: Female
  Weight: 89 kg

DRUGS (21)
  1. XIPAMIDE [Suspect]
     Indication: CARDIAC FAILURE
     Dosage: 40 MG
     Dates: start: 20061205
  2. LANTUS [Suspect]
     Indication: DIABETES MELLITUS
     Dosage: 28 IU/DAY
     Route: 058
  3. NITRATES [Concomitant]
  4. HMG COA REDUCTASE INHIBITORS [Concomitant]
  5. ALDOSTERONE ANTAGONISTS [Concomitant]
  6. ANTIDEPRESSANTS [Concomitant]
  7. ALPHA-RECEPTOR BLOCKER [Concomitant]
  8. ACETYLSALICYLIC ACID SRT [Suspect]
     Indication: COAGULOPATHY
     Dosage: 1 DF
     Route: 048
     Dates: start: 20011025
  9. CARVEDILOL [Suspect]
     Indication: HYPERTENSION
     Dosage: 50 MG
     Route: 048
     Dates: start: 20060831
  10. FUROSEMIDE [Suspect]
     Indication: RENAL FAILURE
     Dosage: 500 MG
     Route: 048
     Dates: start: 20060831
  11. EXFORGE [Suspect]
     Indication: HYPERTENSION
     Dosage: 1 DF
     Route: 048
  12. DIGITOXIN TAB [Suspect]
     Indication: ATRIAL FIBRILLATION
     Dosage: 1 DF
     Dates: start: 20060831
  13. VASODILATORS USED IN CARDIAC DISEASES [Concomitant]
     Dates: end: 20100422
  14. ANTIHYPERTENSIVES [Concomitant]
     Dates: start: 20110516
  15. ACTRAPID HUMAN [Suspect]
     Indication: DIABETES MELLITUS
     Dosage: 26-6-8/DAY
     Route: 058
  16. ACTRAPID HUMAN [Suspect]
     Dosage: 34-10-10/DAY
     Route: 058
  17. ORAL ANTIDIABETICS [Concomitant]
     Indication: DIABETES MELLITUS
  18. DIGITOXIN TAB [Suspect]
     Indication: CARDIAC FAILURE
  19. LANTUS [Suspect]
     Dosage: 30 IU/DAY
     Route: 058
  20. LASIX [Suspect]
     Indication: RENAL FAILURE
     Dosage: 500 MG
     Route: 048
     Dates: start: 20060831
  21. ACTRAPID HUMAN [Suspect]
     Dosage: 26-10-10/DAY
     Route: 058

REACTIONS (3)
  - BLOOD PRESSURE INCREASED [None]
  - DYSPNOEA [None]
  - GLYCOSYLATED HAEMOGLOBIN INCREASED [None]
